FAERS Safety Report 25215554 (Version 1)
Quarter: 2025Q2

REPORT INFORMATION
  Report Type: Spontaneous
  Country: US (occurrence: US)
  Receive Date: 20250418
  Receipt Date: 20250418
  Transmission Date: 20250716
  Serious: No
  Sender: Phathom Pharmaceuticals
  Company Number: US-PHATHOM PHARMACEUTICALS INC.-2025PHT00368

PATIENT
  Age: 50 Year
  Sex: Female

DRUGS (1)
  1. VOQUEZNA [Suspect]
     Active Substance: VONOPRAZAN FUMARATE
     Indication: Gastrooesophageal reflux disease
     Dosage: 20 MG, 1X/DAY
     Route: 048
     Dates: start: 20250117, end: 20250120

REACTIONS (3)
  - Infection [Recovered/Resolved]
  - Dysuria [Recovered/Resolved]
  - Genital odour [Recovered/Resolved]

NARRATIVE: CASE EVENT DATE: 20250119
